FAERS Safety Report 8739523 (Version 3)
Quarter: 2012Q4

REPORT INFORMATION
  Report Type: 
  Country: FR (occurrence: FR)
  Receive Date: 20120823
  Receipt Date: 20121109
  Transmission Date: 20130627
  Serious: Yes (Hospitalization)
  Sender: FDA-Public Use
  Company Number: FR-B.I. PHARMACEUTICALS,INC./RIDGEFIELD-2012-FF-01061FF

PATIENT
  Age: 68 Year
  Sex: Male

DRUGS (3)
  1. PRADAXA [Suspect]
     Dosage: 220 mg
     Route: 048
     Dates: start: 20120715, end: 20120730
  2. PRADAXA [Suspect]
     Dosage: 300 mg
     Route: 048
     Dates: start: 20120803
  3. PREVISCAN [Suspect]
     Dosage: 35 mg
     Route: 048
     Dates: start: 201009, end: 20120630

REACTIONS (2)
  - Reversible ischaemic neurological deficit [Recovered/Resolved]
  - Ischaemic stroke [Recovered/Resolved]
